FAERS Safety Report 4501395-0 (Version None)
Quarter: 2004Q4

REPORT INFORMATION
  Report Type: 
  Country: None (occurrence: None)
  Receive Date: 20041110
  Receipt Date: 20041026
  Transmission Date: 20050328
  Serious: Yes (Disabling)
  Sender: FDA-Public Use
  Company Number: 200409689

PATIENT
  Age: 30 Year
  Sex: Male

DRUGS (4)
  1. BLEPHAMIDE [Suspect]
     Indication: CONJUNCTIVITIS
     Dates: start: 20020804, end: 20020814
  2. BLEPHAMIDE [Suspect]
     Indication: CORNEAL ABRASION
     Dates: start: 20020804, end: 20020814
  3. STEROID [Concomitant]
  4. GENTAMICIN [Concomitant]

REACTIONS (8)
  - BACTERIAL INFECTION [None]
  - BLINDNESS TRANSIENT [None]
  - CORNEAL SCAR [None]
  - CORNEAL ULCER [None]
  - HYPERSENSITIVITY [None]
  - INTRAOCULAR PRESSURE INCREASED [None]
  - KERATITIS HERPETIC [None]
  - PHOTOPHOBIA [None]
